FAERS Safety Report 13935337 (Version 1)
Quarter: 2017Q3

REPORT INFORMATION
  Report Type: Spontaneous
  Country: US (occurrence: US)
  Receive Date: 20170901
  Receipt Date: 20170901
  Transmission Date: 20171127
  Serious: Yes (Life-Threatening)
  Sender: FDA-Public Use
  Company Number: None

PATIENT
  Age: 66 Year
  Sex: Female
  Weight: 72 kg

DRUGS (1)
  1. GEMCITABINE [Suspect]
     Active Substance: GEMCITABINE\GEMCITABINE HYDROCHLORIDE
     Indication: ADENOCARCINOMA

REACTIONS (5)
  - Blood lactate dehydrogenase increased [None]
  - Blood creatinine increased [None]
  - Blood urea increased [None]
  - Thrombotic microangiopathy [None]
  - Haemolytic uraemic syndrome [None]

NARRATIVE: CASE EVENT DATE: 20170728
